FAERS Safety Report 7889672-7 (Version None)
Quarter: 2011Q4

REPORT INFORMATION
  Report Type: 
  Country: None (occurrence: None)
  Receive Date: 20111103
  Receipt Date: 20111028
  Transmission Date: 20120403
  Serious: Yes (Other)
  Sender: FDA-Public Use
  Company Number: US-TEVA-307000USA

PATIENT

DRUGS (1)
  1. SEASONIQUE [Suspect]
     Route: 048
     Dates: start: 20110801

REACTIONS (6)
  - UTERINE PAIN [None]
  - ABDOMINAL PAIN [None]
  - HAEMATOCHEZIA [None]
  - UTERINE LEIOMYOMA [None]
  - PANCREATIC HAEMORRHAGE [None]
  - HEPATIC HAEMORRHAGE [None]
